FAERS Safety Report 9456956 (Version 1)
Quarter: 2013Q3

REPORT INFORMATION
  Report Type: Spontaneous
  Country: FI (occurrence: FI)
  Receive Date: 20130814
  Receipt Date: 20130814
  Transmission Date: 20140515
  Serious: Yes (Other)
  Sender: FDA-Public Use
  Company Number: FI-009507513-1304FIN009479

PATIENT
  Sex: Female

DRUGS (2)
  1. ISENTRESS [Suspect]
     Dosage: FIRST DOSE ADMINISTERED
  2. COMBIVIR [Concomitant]
     Dosage: UNK

REACTIONS (2)
  - Premature labour [Recovered/Resolved]
  - Exposure during pregnancy [Recovered/Resolved]
